FAERS Safety Report 5809494-8 (Version None)
Quarter: 2008Q3

REPORT INFORMATION
  Report Type: 
  Country: None (occurrence: None)
  Receive Date: 20080708
  Receipt Date: 20071030
  Transmission Date: 20090109
  Serious: Yes (Death, Hospitalization)
  Sender: FDA-Public Use
  Company Number: M-04-041

PATIENT
  Age: 69 Year
  Sex: Male

DRUGS (18)
  1. AMIODARONE HCL [Suspect]
     Indication: ATRIAL FIBRILLATION
     Dosage: 200 MG QD PO
     Route: 048
     Dates: start: 20030224, end: 20040104
  2. SYNTHROID [Concomitant]
  3. DIGOXIN [Concomitant]
  4. COUMADIN [Concomitant]
  5. ALLOPURINOL [Concomitant]
  6. CELEXA [Concomitant]
  7. TRAZODONE HCL [Concomitant]
  8. LORAZEPAM [Concomitant]
  9. PRILOSEC [Concomitant]
  10. PREDNISONE TAB [Concomitant]
  11. ZOCOR [Concomitant]
  12. CELEBREX [Concomitant]
  13. K-DUR [Concomitant]
  14. LASIX [Concomitant]
  15. NEURONTIN [Concomitant]
  16. ALPHAGAN [Concomitant]
  17. CLONIDINE [Concomitant]
  18. HYDROCHLOROTHIAZIDE [Concomitant]

REACTIONS (2)
  - PNEUMONIA [None]
  - PULMONARY TOXICITY [None]
